FAERS Safety Report 13560239 (Version 10)
Quarter: 2018Q1

REPORT INFORMATION
  Report Type: Spontaneous
  Country: US (occurrence: US)
  Receive Date: 20170518
  Receipt Date: 20180308
  Transmission Date: 20180508
  Serious: No
  Sender: FDA-Public Use
  Company Number: US-PFIZER INC-2017215213

PATIENT
  Age: 58 Year
  Sex: Female

DRUGS (3)
  1. XELJANZ XR [Suspect]
     Active Substance: TOFACITINIB CITRATE
     Dosage: 11 MG, UNK
     Dates: start: 20170811, end: 201801
  2. XELJANZ XR [Suspect]
     Active Substance: TOFACITINIB CITRATE
     Dosage: 11 MG, UNK
     Dates: start: 20170720
  3. XELJANZ XR [Suspect]
     Active Substance: TOFACITINIB CITRATE
     Dosage: 11 MG, UNK
     Dates: start: 20160826

REACTIONS (8)
  - Arthralgia [Unknown]
  - Incontinence [Unknown]
  - Labyrinthitis [Unknown]
  - Hepatic enzyme increased [Recovering/Resolving]
  - Skin discolouration [Unknown]
  - Spinal pain [Unknown]
  - Drug dose omission [Unknown]
  - Contusion [Unknown]
